FAERS Safety Report 11918077 (Version 3)
Quarter: 2016Q3

REPORT INFORMATION
  Report Type: Spontaneous
  Country: JP (occurrence: JP)
  Receive Date: 20160114
  Receipt Date: 20160810
  Transmission Date: 20161109
  Serious: Yes (Death, Hospitalization, Other)
  Sender: FDA-Public Use
  Company Number: JP-009507513-1601JPN003645

PATIENT
  Age: 81 Year
  Sex: Female
  Weight: 45 kg

DRUGS (13)
  1. DEPAS [Concomitant]
     Active Substance: ETIZOLAM
     Dosage: DAILY DOSAGE UNKNOWN
     Route: 048
  2. REBETOL [Suspect]
     Active Substance: RIBAVIRIN
     Dosage: 200 MG, BID
     Route: 048
     Dates: start: 20151027, end: 20151208
  3. LOXONIN [Concomitant]
     Active Substance: LOXOPROFEN SODIUM
     Dosage: DAILY DOSAGE UNKNOWN
     Route: 048
  4. BISOLVON [Concomitant]
     Active Substance: BROMHEXINE HYDROCHLORIDE
     Dosage: DAILY DOSAGE UNKNOWN
     Route: 065
  5. ADALAT [Concomitant]
     Active Substance: NIFEDIPINE
     Dosage: 20 MG, BID
     Route: 048
  6. HUSTAZOL (CLOPERASTINE FENDIZOATE) [Concomitant]
     Dosage: DAILY DOSAGE UNKNOWN
     Route: 065
  7. SOVALDI [Suspect]
     Active Substance: SOFOSBUVIR
     Dosage: 400 MG, DAILY (DEVIDED DOSE FREQUENCY UNKNOWN)
     Route: 048
     Dates: start: 20151027, end: 20151208
  8. URSODIOL. [Concomitant]
     Active Substance: URSODIOL
     Dosage: 300 MG, TID
     Route: 048
  9. GANATON [Concomitant]
     Active Substance: ITOPRIDE
     Dosage: 50 MG, BID
     Route: 048
  10. NU-LOTAN [Concomitant]
     Active Substance: LOSARTAN POTASSIUM
     Dosage: 50 MG, BID
     Route: 048
  11. SOLANAX [Concomitant]
     Active Substance: ALPRAZOLAM
     Dosage: DAILY DOSAGE UNKNOWN
     Route: 048
  12. PROHEPARUM [Concomitant]
     Active Substance: CHOLINE BITARTRATE\CYSTEINE\INOSITOL\MAMMAL LIVER
     Dosage: 2 DOSAGE FORM (DF), TID
     Route: 048
  13. RANITIDINE HYDROCHLORIDE. [Concomitant]
     Active Substance: RANITIDINE HYDROCHLORIDE
     Dosage: 150 MG, BID
     Route: 048

REACTIONS (8)
  - Brain death [Unknown]
  - Electrocardiogram QT prolonged [Unknown]
  - Pneumonia [Unknown]
  - Cardio-respiratory arrest [Fatal]
  - Renal failure [Unknown]
  - General physical health deterioration [Unknown]
  - Hypoxic-ischaemic encephalopathy [Unknown]
  - Bradycardia [Unknown]

NARRATIVE: CASE EVENT DATE: 20151208
